FAERS Safety Report 8469684-5 (Version None)
Quarter: 2012Q2

REPORT INFORMATION
  Report Type: 
  Country: None (occurrence: None)
  Receive Date: 20120626
  Receipt Date: 20120619
  Transmission Date: 20120825
  Serious: Yes (Other)
  Sender: FDA-Public Use
  Company Number: CA-ROCHE-1081214

PATIENT
  Sex: Female

DRUGS (6)
  1. PREDNISONE TAB [Concomitant]
  2. ADVAIR DISKUS 100/50 [Concomitant]
  3. XOLAIR [Suspect]
     Route: 058
     Dates: start: 20120619
  4. XOLAIR [Suspect]
     Indication: ASTHMA
     Route: 058
     Dates: start: 20110708
  5. VENTOLIN [Concomitant]
  6. SINGULAIR [Concomitant]

REACTIONS (13)
  - HOT FLUSH [None]
  - NAUSEA [None]
  - APHONIA [None]
  - PRODUCTIVE COUGH [None]
  - RASH [None]
  - NASAL CONGESTION [None]
  - COUGH [None]
  - PRURITUS [None]
  - PYREXIA [None]
  - DYSPHONIA [None]
  - INJECTION SITE PAIN [None]
  - DYSPNOEA [None]
  - FATIGUE [None]
